FAERS Safety Report 23338870 (Version 1)
Quarter: 2023Q4

REPORT INFORMATION
  Report Type: Spontaneous
  Country: US (occurrence: US)
  Receive Date: 20231226
  Receipt Date: 20231226
  Transmission Date: 20240109
  Serious: Yes (Hospitalization, Other)
  Sender: FDA-Public Use
  Company Number: US-GLAXOSMITHKLINE-US2023GSK177722

PATIENT

DRUGS (5)
  1. BUPROPION [Suspect]
     Active Substance: BUPROPION
     Indication: Product used for unknown indication
     Dosage: APPROX. 13.5 G
     Route: 048
  2. CLONIDINE [Suspect]
     Active Substance: CLONIDINE
     Indication: Product used for unknown indication
     Dosage: APPROXIMATELY 6 MG
     Route: 048
  3. FLUOXETINE [Suspect]
     Active Substance: FLUOXETINE HYDROCHLORIDE
     Indication: Product used for unknown indication
     Dosage: APPROXIMATELY 1.2 G
     Route: 048
  4. GABAPENTIN [Suspect]
     Active Substance: GABAPENTIN
     Indication: Product used for unknown indication
     Dosage: APPROXIMATELY 9 G
     Route: 048
  5. QUETIAPINE [Suspect]
     Active Substance: QUETIAPINE
     Indication: Product used for unknown indication
     Dosage: APPROXIMATELY 6 G
     Route: 048

REACTIONS (16)
  - Toxicity to various agents [Unknown]
  - Seizure [Unknown]
  - Myoclonus [Unknown]
  - Hypotonia [Unknown]
  - Normochromic normocytic anaemia [Unknown]
  - Acidosis [Unknown]
  - Hypokinesia [Unknown]
  - Electrocardiogram QT prolonged [Recovering/Resolving]
  - Cardiovascular disorder [Recovering/Resolving]
  - Condition aggravated [Unknown]
  - Respiratory failure [Unknown]
  - Acute respiratory distress syndrome [Unknown]
  - Speech disorder [Unknown]
  - Hypotension [Unknown]
  - Systolic dysfunction [Recovering/Resolving]
  - Intentional overdose [Unknown]
